FAERS Safety Report 7387107-4 (Version None)
Quarter: 2011Q1

REPORT INFORMATION
  Report Type: 
  Country: None (occurrence: None)
  Receive Date: 20110331
  Receipt Date: 20110324
  Transmission Date: 20110831
  Serious: Yes (Hospitalization)
  Sender: FDA-Public Use
  Company Number: A0773167A

PATIENT
  Age: 57 Year
  Sex: Female
  Weight: 134.1 kg

DRUGS (8)
  1. HUMALOG [Concomitant]
  2. HYDROCHLOROTHIAZIDE [Concomitant]
  3. LASIX [Concomitant]
  4. GLUCOPHAGE [Concomitant]
  5. AVANDIA [Suspect]
     Indication: DIABETES MELLITUS
     Dosage: 4MG TWICE PER DAY
     Route: 048
     Dates: start: 20050301, end: 20070501
  6. LOVASTATIN [Concomitant]
  7. ALTACE [Concomitant]
  8. FUROSEMIDE [Concomitant]
     Dates: start: 20030102

REACTIONS (6)
  - RENAL FAILURE [None]
  - CEREBROVASCULAR ACCIDENT [None]
  - ISCHAEMIC STROKE [None]
  - CORONARY ARTERY DISEASE [None]
  - MYOCARDIAL ISCHAEMIA [None]
  - CARDIOVASCULAR DISORDER [None]
